FAERS Safety Report 12256898 (Version 3)
Quarter: 2016Q3

REPORT INFORMATION
  Report Type: Spontaneous
  Country: US (occurrence: US)
  Receive Date: 20160412
  Receipt Date: 20160721
  Transmission Date: 20161109
  Serious: Yes (Other)
  Sender: FDA-Public Use
  Company Number: US-GLAXOSMITHKLINE-US2016GSK047425

PATIENT
  Sex: Female
  Weight: 70.75 kg

DRUGS (1)
  1. TANZEUM [Suspect]
     Active Substance: ALBIGLUTIDE
     Indication: TYPE 2 DIABETES MELLITUS
     Dosage: 50 MG, UNK
     Route: 042
     Dates: start: 2015

REACTIONS (7)
  - Knee arthroplasty [Unknown]
  - Drug dose omission [Unknown]
  - Device use error [Unknown]
  - Memory impairment [Not Recovered/Not Resolved]
  - Ill-defined disorder [Not Recovered/Not Resolved]
  - Device leakage [Unknown]
  - Accidental exposure to product [Unknown]
